FAERS Safety Report 4942821-2 (Version None)
Quarter: 2006Q1

REPORT INFORMATION
  Report Type: 
  Country: None (occurrence: None)
  Receive Date: 20060314
  Receipt Date: 20060302
  Transmission Date: 20060701
  Serious: Yes (Other)
  Sender: FDA-Public Use
  Company Number: PHNU2006DE01207

PATIENT
  Sex: Male

DRUGS (4)
  1. DIOVAN HCT [Suspect]
     Dosage: 1 DF, QD
     Route: 048
     Dates: start: 20020101
  2. METOPROLOL ^STADA^ [Concomitant]
     Dosage: 150 (100-0-50)
     Dates: start: 20020101
  3. DIGOTAB [Concomitant]
     Dosage: UNK, UNK
     Dates: start: 20020101
  4. MARCUMAR [Concomitant]
     Dates: start: 20020101

REACTIONS (2)
  - PERIPHERAL COLDNESS [None]
  - POLYNEUROPATHY [None]
